FAERS Safety Report 9515826 (Version 1)
Quarter: 2013Q1

REPORT INFORMATION
  Report Type: Spontaneous
  Country: US (occurrence: None)
  Receive Date: 20130305
  Receipt Date: 20130305
  Transmission Date: 20140127
  Serious: Yes (Hospitalization)
  Sender: FDA-Public Use
  Company Number: 163-21880-12122656

PATIENT
  Age: 87 Year
  Sex: Female
  Weight: 45.36 kg

DRUGS (9)
  1. REVLIMID [Suspect]
     Indication: MYELODYSPLASTIC SYNDROME
     Dosage: 5 MG, 1 IN 1 D, PO
     Route: 048
     Dates: start: 20120824
  2. ADVAIR DISKUS (SERETIDE MITE) (UNKNOWN) [Concomitant]
  3. CITALOPRAM HBR (CITALOPRAM HYDROBROMIDE) (UNKNOWN) [Concomitant]
  4. DIGOXIN (DIGOXIN) (TABLETS) [Concomitant]
  5. MULTIVITAMINS (MULTIVITAMINS) (TABLETS) [Concomitant]
  6. NASONEX (MOMETASONE FUROATE) (SPRAY (NOT INHALATION) [Concomitant]
  7. SIMVASTATIN [Concomitant]
  8. SYNTHROID (LEVOTHYROXINE SODIUM) (TABLETS) [Concomitant]
  9. VITAMIN D (ERGOCALCIFEROL) (CAPSULES) [Concomitant]

REACTIONS (1)
  - Chronic obstructive pulmonary disease [None]
